FAERS Safety Report 9471551 (Version 1)
Quarter: 2013Q3

REPORT INFORMATION
  Report Type: Spontaneous
  Country: IT (occurrence: IT)
  Receive Date: 20130822
  Receipt Date: 20130822
  Transmission Date: 20140515
  Serious: Yes (Hospitalization, Other)
  Sender: FDA-Public Use
  Company Number: PHHY2013IT088494

PATIENT
  Age: 85 Year
  Sex: Female

DRUGS (9)
  1. TRAMADOL [Suspect]
     Indication: BACK PAIN
     Dosage: 100 MG, PER DAY
  2. VAXIGRIP [Interacting]
     Indication: INFLUENZA IMMUNISATION
  3. ALLOPURINOL [Concomitant]
     Dosage: 150 MG, PER DAY
  4. CARVEDIOL [Concomitant]
     Dosage: 50 MG, PER DAY
  5. FUROSEMIDE [Concomitant]
     Dosage: 50 MG, PER DAY
  6. TELMISARTAN [Concomitant]
     Dosage: 80 MG, PER DAY
  7. RANITIDINE [Concomitant]
     Dosage: 150 MG, PER DAY
  8. SIMVASTATIN [Concomitant]
     Dosage: 20 MG, PER DAY
  9. BARNIDIPINE [Concomitant]
     Dosage: 20 MG, PER DAY

REACTIONS (6)
  - Amnesia [Unknown]
  - Balance disorder [Unknown]
  - Fall [Unknown]
  - Confusional state [Unknown]
  - Hallucination [Recovered/Resolved]
  - Drug interaction [Unknown]
